FAERS Safety Report 5597726-3 (Version None)
Quarter: 2008Q1

REPORT INFORMATION
  Report Type: 
  Country: None (occurrence: None)
  Receive Date: 20080121
  Receipt Date: 20080108
  Transmission Date: 20080703
  Serious: Yes (Other)
  Sender: FDA-Public Use
  Company Number: US-ELI_LILLY_AND_COMPANY-US200801001863

PATIENT
  Sex: Female

DRUGS (5)
  1. HUMULIN R [Suspect]
     Indication: DIABETES MELLITUS
  2. HUMULIN 70/30 [Suspect]
  3. HUMULIN U [Suspect]
  4. LANTUS [Concomitant]
     Dosage: UNK, UNK
  5. GLUCOPHAGE [Concomitant]

REACTIONS (2)
  - BLINDNESS UNILATERAL [None]
  - RETINOPATHY [None]
